FAERS Safety Report 13259508 (Version 6)
Quarter: 2018Q2

REPORT INFORMATION
  Report Type: Spontaneous
  Country: JP (occurrence: JP)
  Receive Date: 20170222
  Receipt Date: 20180403
  Transmission Date: 20180711
  Serious: Yes (Hospitalization, Other)
  Sender: FDA-Public Use
  Company Number: JP-BRISTOL-MYERS SQUIBB COMPANY-BMS-2017-014498

PATIENT
  Age: 79 Year
  Sex: Male

DRUGS (1)
  1. OPDIVO [Suspect]
     Active Substance: NIVOLUMAB
     Indication: NON-SMALL CELL LUNG CANCER RECURRENT
     Dosage: 3 MG/KG, UNK
     Route: 041
     Dates: start: 201604

REACTIONS (4)
  - Abscess drainage [Unknown]
  - Abdominal wall abscess [Recovering/Resolving]
  - Condition aggravated [Recovering/Resolving]
  - Bacterial infection [Unknown]
